FAERS Safety Report 5879836-6 (Version None)
Quarter: 2008Q3

REPORT INFORMATION
  Report Type: 
  Country: None (occurrence: None)
  Receive Date: 20080912
  Receipt Date: 20080902
  Transmission Date: 20090109
  Serious: Yes (Other)
  Sender: FDA-Public Use
  Company Number: US-PURDUE-DEU_2008_0004340

PATIENT
  Age: 26 Year
  Sex: Male

DRUGS (5)
  1. OXYCODONE HCL [Suspect]
     Indication: DRUG USE FOR UNKNOWN INDICATION
     Dosage: 5 MG, TWICE
     Route: 048
  2. FENTANYL [Suspect]
     Indication: DRUG USE FOR UNKNOWN INDICATION
     Dosage: 25 MCG, Q1H
     Route: 062
  3. NORTRIPTYLINE HCL [Suspect]
  4. HYDROXYZINE [Concomitant]
  5. MEPIRIDINE [Suspect]
     Indication: DRUG USE FOR UNKNOWN INDICATION
     Route: 051

REACTIONS (9)
  - ABDOMINAL PAIN [None]
  - FATIGUE [None]
  - HYPERHIDROSIS [None]
  - MIGRAINE [None]
  - MULTIPLE DRUG OVERDOSE [None]
  - NAUSEA [None]
  - PALLOR [None]
  - PALPITATIONS [None]
  - VOMITING [None]
